FAERS Safety Report 23079843 (Version 2)
Quarter: 2023Q4

REPORT INFORMATION
  Report Type: Spontaneous
  Country: AR (occurrence: AR)
  Receive Date: 20231018
  Receipt Date: 20231110
  Transmission Date: 20240109
  Serious: Yes (Hospitalization)
  Sender: FDA-Public Use
  Company Number: AR-002147023-NVSC2023AR215746

PATIENT
  Sex: Female

DRUGS (8)
  1. TEGRETOL [Suspect]
     Active Substance: CARBAMAZEPINE
     Indication: Epilepsy
     Dosage: 200 MG, (40 YEARS AGO)
     Route: 048
     Dates: end: 2018
  2. TEGRETOL [Suspect]
     Active Substance: CARBAMAZEPINE
     Dosage: UNK
     Route: 048
     Dates: start: 2018
  3. TEGRETOL [Suspect]
     Active Substance: CARBAMAZEPINE
     Dosage: HALF TABLETS OF 400 MG, QW
     Route: 048
  4. TEGRETOL [Suspect]
     Active Substance: CARBAMAZEPINE
     Dosage: 400 MG, TID (THREE TIMES A DAY) (5 OR 6 YEARS AGO)
     Route: 048
  5. TEGRETOL [Suspect]
     Active Substance: CARBAMAZEPINE
     Dosage: UNK (INCREASING HER OWN DOSE BY HALF)
     Route: 048
  6. LAMOTRIGINE [Concomitant]
     Active Substance: LAMOTRIGINE
     Indication: Epilepsy
     Dosage: UNK, QD
     Route: 065
     Dates: start: 2018
  7. ATORVASTATIN [Concomitant]
     Active Substance: ATORVASTATIN
     Indication: Blood cholesterol abnormal
     Dosage: UNK, QD
     Route: 065
     Dates: start: 2013
  8. LEVOTHYROXINE [Concomitant]
     Active Substance: LEVOTHYROXINE
     Indication: Thyroid disorder
     Dosage: UNK
     Route: 065
     Dates: start: 202301

REACTIONS (7)
  - Blood sodium decreased [Recovering/Resolving]
  - Tongue biting [Unknown]
  - Head injury [Unknown]
  - Syncope [Unknown]
  - Fall [Recovering/Resolving]
  - Epilepsy [Unknown]
  - Intentional product use issue [Unknown]
